FAERS Safety Report 6712273-0 (Version None)
Quarter: 2010Q2

REPORT INFORMATION
  Report Type: 
  Country: None (occurrence: None)
  Receive Date: 20100505
  Receipt Date: 20100422
  Transmission Date: 20101027
  Serious: Yes (Other)
  Sender: FDA-Public Use
  Company Number: US-ELI_LILLY_AND_COMPANY-US200911003534

PATIENT
  Sex: Female

DRUGS (3)
  1. CYMBALTA [Suspect]
     Indication: ANXIETY
     Dosage: 60 MG, DAILY (1/D)
     Route: 048
     Dates: start: 20050101, end: 20050101
  2. CYMBALTA [Suspect]
     Dosage: 30 MG, OTHER
     Route: 048
     Dates: start: 20050101
  3. CYMBALTA [Suspect]
     Dosage: 30 MG, OTHER
     Route: 048
     Dates: start: 20091001

REACTIONS (12)
  - CONFUSIONAL STATE [None]
  - DRUG WITHDRAWAL SYNDROME [None]
  - EMOTIONAL DISTRESS [None]
  - FATIGUE [None]
  - HEADACHE [None]
  - MENTAL IMPAIRMENT [None]
  - MUSCLE SPASMS [None]
  - NAUSEA [None]
  - NEURALGIA [None]
  - NEUROPATHY PERIPHERAL [None]
  - UNEVALUABLE EVENT [None]
  - VOMITING [None]
